FAERS Safety Report 10007184 (Version 1)
Quarter: 2014Q1

REPORT INFORMATION
  Report Type: Spontaneous
  Country: US (occurrence: US)
  Receive Date: 20140313
  Receipt Date: 20140313
  Transmission Date: 20141002
  Serious: No
  Sender: FDA-Public Use
  Company Number: US-PFIZER INC-2014072144

PATIENT
  Age: 65 Year
  Sex: Male

DRUGS (1)
  1. CADUET [Suspect]
     Dosage: 10-80MG, 1 QD
     Route: 048

REACTIONS (2)
  - Drug hypersensitivity [Unknown]
  - Drug prescribing error [Unknown]
